FAERS Safety Report 25872311 (Version 1)
Quarter: 2025Q4

REPORT INFORMATION
  Report Type: Spontaneous
  Country: JP (occurrence: JP)
  Receive Date: 20251002
  Receipt Date: 20251002
  Transmission Date: 20260117
  Serious: Yes (Other)
  Sender: ASTELLAS
  Company Number: JP-ASTELLAS-2025-AER-053556

PATIENT
  Sex: Male

DRUGS (1)
  1. PADCEV [Suspect]
     Active Substance: ENFORTUMAB VEDOTIN-EJFV
     Indication: Product used for unknown indication
     Route: 065

REACTIONS (7)
  - Quadriplegia [Not Recovered/Not Resolved]
  - Anhidrosis [Unknown]
  - Hyperhidrosis [Unknown]
  - Feeling hot [Unknown]
  - Dry skin [Unknown]
  - Alopecia [Recovering/Resolving]
  - Sensory disturbance [Unknown]
